FAERS Safety Report 8057238-4 (Version None)
Quarter: 2012Q1

REPORT INFORMATION
  Report Type: 
  Country: None (occurrence: None)
  Receive Date: 20120119
  Receipt Date: 20120113
  Transmission Date: 20120608
  Serious: Yes (Other)
  Sender: FDA-Public Use
  Company Number: PHHY2011JP112719

PATIENT
  Age: 68 Year
  Sex: Female

DRUGS (2)
  1. CYCLOSPORINE [Suspect]
     Indication: MYASTHENIA GRAVIS
     Route: 048
  2. ANTI-CHOLINESTERASE INHIBITOR [Concomitant]

REACTIONS (1)
  - DIABETES MELLITUS [None]
